FAERS Safety Report 13509084 (Version 1)
Quarter: 2017Q2

REPORT INFORMATION
  Report Type: Spontaneous
  Country: US (occurrence: US)
  Receive Date: 20170503
  Receipt Date: 20170503
  Transmission Date: 20170830
  Serious: No
  Sender: FDA-Public Use
  Company Number: US-ASTRAZENECA-2016SF31190

PATIENT
  Sex: Female

DRUGS (3)
  1. BYDUREON [Suspect]
     Active Substance: EXENATIDE
     Indication: WEIGHT DECREASED
     Dosage: PEN 2 MG 4 COUNT, ONCE A WEEK
     Route: 058
     Dates: start: 20161123
  2. METFORMIN [Concomitant]
     Active Substance: METFORMIN HYDROCHLORIDE
     Indication: GLUCOSE TOLERANCE IMPAIRED
     Route: 048
  3. BYDUREON [Suspect]
     Active Substance: EXENATIDE
     Indication: GLUCOSE TOLERANCE IMPAIRED
     Dosage: PEN 2 MG 4 COUNT, ONCE A WEEK
     Route: 058
     Dates: start: 20161123

REACTIONS (1)
  - Injection site pain [Unknown]
